FAERS Safety Report 16145972 (Version 1)
Quarter: 2019Q2

REPORT INFORMATION
  Report Type: Other
  Country: US (occurrence: BR)
  Receive Date: 20190402
  Receipt Date: 20190402
  Transmission Date: 20190711
  Serious: Yes (Other)
  Sender: FDA-Public Use
  Company Number: US-MACLEODS PHARMACEUTICALS US LTD-MAC2019020634

PATIENT

DRUGS (2)
  1. LAMIVUDINE/ZIDOVUDINE [Suspect]
     Active Substance: LAMIVUDINE\ZIDOVUDINE
     Indication: HIV INFECTION
     Dosage: UNK, BID, 1 COURSE OF LAMIVUDINE/ZIDOVUDINE TAB/CAPS BID ORALLY
     Route: 048
     Dates: start: 20171205, end: 20180308
  2. ISENTRESS [Suspect]
     Active Substance: RALTEGRAVIR POTASSIUM
     Indication: HIV INFECTION
     Dosage: 800 MILLIGRAM, QD, 1 COURSE OF ISENTRESS RAL (RALTEGRAVIR) 800 MG PER DAY ORALLY
     Route: 048
     Dates: start: 20171205

REACTIONS (1)
  - Maternal exposure during pregnancy [Unknown]
